FAERS Safety Report 6133678-5 (Version None)
Quarter: 2009Q1

REPORT INFORMATION
  Report Type: 
  Country: None (occurrence: None)
  Receive Date: 20090326
  Receipt Date: 20090318
  Transmission Date: 20090719
  Serious: Yes (Hospitalization)
  Sender: FDA-Public Use
  Company Number: B0560832A

PATIENT
  Age: 64 Year
  Sex: Female
  Weight: 84 kg

DRUGS (4)
  1. LAPATINIB [Suspect]
     Dosage: 1250MG PER DAY
     Route: 048
     Dates: start: 20081224
  2. DOCETAXEL [Suspect]
     Dosage: 139MG EVERY 3 WEEKS
     Route: 042
     Dates: start: 20081224
  3. ENALAPRIL [Concomitant]
     Indication: HYPERTENSION
     Dates: start: 20050101
  4. FUROSEMIDE [Concomitant]
     Indication: HYPERTENSION
     Dates: start: 20050101

REACTIONS (1)
  - ATRIAL FIBRILLATION [None]
